FAERS Safety Report 16831047 (Version 3)
Quarter: 2019Q4

REPORT INFORMATION
  Report Type: Report from Study
  Country: US (occurrence: US)
  Receive Date: 20190920
  Receipt Date: 20191029
  Transmission Date: 20200122
  Serious: Yes (Hospitalization, Other)
  Sender: FDA-Public Use
  Company Number: US-GILEAD-2019-0428984

PATIENT
  Age: 68 Year
  Sex: Female

DRUGS (2)
  1. HYDRALAZINE [Concomitant]
     Active Substance: HYDRALAZINE HYDROCHLORIDE
  2. AMBRISENTAN [Suspect]
     Active Substance: AMBRISENTAN
     Indication: PRODUCT USED FOR UNKNOWN INDICATION
     Dosage: 10 MG, QD
     Route: 048
     Dates: start: 20181005

REACTIONS (6)
  - Feeling drunk [Unknown]
  - Ascites [Unknown]
  - Dizziness [Unknown]
  - Pulmonary oedema [Unknown]
  - Dyspnoea [Unknown]
  - Hypotension [Unknown]
